FAERS Safety Report 17310633 (Version 1)
Quarter: 2020Q1

REPORT INFORMATION
  Report Type: Report from Study
  Country: US (occurrence: US)
  Receive Date: 20200123
  Receipt Date: 20200123
  Transmission Date: 20200409
  Serious: Yes (Hospitalization)
  Sender: FDA-Public Use
  Company Number: US-EXELIXIS-XL18419024768

PATIENT
  Sex: Female

DRUGS (4)
  1. DILAUDID [Concomitant]
     Active Substance: HYDROMORPHONE HYDROCHLORIDE
  2. LEVOTHYROXIN [Concomitant]
     Active Substance: LEVOTHYROXINE
  3. O2 [Concomitant]
     Active Substance: OXYGEN
  4. XL184 [Suspect]
     Active Substance: CABOZANTINIB
     Indication: ADRENOCORTICAL CARCINOMA
     Dosage: 40 MG, QD
     Route: 048
     Dates: start: 20190426

REACTIONS (5)
  - Back pain [Not Recovered/Not Resolved]
  - Pneumothorax spontaneous [Unknown]
  - Gastritis [Unknown]
  - Haematemesis [Unknown]
  - Pleurisy [Unknown]

NARRATIVE: CASE EVENT DATE: 20191022
